FAERS Safety Report 5281233-1 (Version None)
Quarter: 2007Q1

REPORT INFORMATION
  Report Type: 
  Country: None (occurrence: None)
  Receive Date: 20070323
  Receipt Date: 20070308
  Transmission Date: 20070707
  Serious: Yes (Hospitalization)
  Sender: FDA-Public Use
  Company Number: SPV1-2007-01384

PATIENT

DRUGS (1)
  1. PENTASA [Suspect]
     Indication: COLITIS
     Dosage: 750 MG 3XS DAILY, ORAL
     Route: 048

REACTIONS (1)
  - EOSINOPHILIC PNEUMONIA [None]
